FAERS Safety Report 21434421 (Version 1)
Quarter: 2022Q4

REPORT INFORMATION
  Report Type: Spontaneous
  Country: GB (occurrence: GB)
  Receive Date: 20221010
  Receipt Date: 20221010
  Transmission Date: 20230113
  Serious: Yes (Other)
  Sender: FDA-Public Use
  Company Number: None

PATIENT
  Age: 61 Year
  Sex: Female
  Weight: 137 kg

DRUGS (6)
  1. IBUPROFEN [Suspect]
     Active Substance: IBUPROFEN
     Indication: Product used for unknown indication
     Dosage: UNK, GEL
     Route: 061
     Dates: start: 20220803
  2. BECLOMETHASONE DIPROPIONATE [Concomitant]
     Active Substance: BECLOMETHASONE DIPROPIONATE
     Indication: Product used for unknown indication
     Dosage: 4 DOSAGE FORM, BID(INHALE TWO PUFFS TWICE DAILY) INHALATION SOLUTION
     Dates: start: 20210217
  3. CLOTRIMAZOLE [Concomitant]
     Active Substance: CLOTRIMAZOLE
     Indication: Product used for unknown indication
     Dosage: 2 DOSAGE FORM, BID (TWICE A DAY FOR 7 DAYS)
     Route: 065
     Dates: start: 20220808
  4. COCODAMOL [Concomitant]
     Active Substance: ACETAMINOPHEN\CODEINE PHOSPHATE
     Indication: Product used for unknown indication
     Dosage: UNK, QID (1-2 FOUR TIMES A DAY AS NEEDED) AS NECESSARY
     Route: 065
     Dates: start: 20220808
  5. DIHYDROCODEINE [Concomitant]
     Active Substance: DIHYDROCODEINE
     Indication: Product used for unknown indication
     Dosage: UNK, QID (ONE TO TWO FOUR TIMES DAILY AS REQUIRED )
     Route: 065
     Dates: start: 20200615, end: 20220808
  6. ALBUTEROL [Concomitant]
     Active Substance: ALBUTEROL
     Indication: Product used for unknown indication
     Dosage: 2 DOSAGE FORM, INHALE 2 DOSES AS (INHALATION SOLUTION)
     Dates: start: 20201202

REACTIONS (1)
  - Asthma [Unknown]

NARRATIVE: CASE EVENT DATE: 20220808
